FAERS Safety Report 7814867-8 (Version None)
Quarter: 2011Q4

REPORT INFORMATION
  Report Type: 
  Country: None (occurrence: None)
  Receive Date: 20111013
  Receipt Date: 20111013
  Transmission Date: 20120403
  Serious: Yes (Other)
  Sender: FDA-Public Use
  Company Number: None

PATIENT
  Age: 61 Year
  Sex: Female
  Weight: 60.3284 kg

DRUGS (2)
  1. LYRICA [Suspect]
     Indication: BACK PAIN
     Dosage: 50 MG 1X DAY ORALLY (1 WEEK)  50 MG 2X DAY ORALLY (AFTER 7 DAYS)
     Route: 048
     Dates: start: 20110830, end: 20110909
  2. LYRICA [Suspect]
     Indication: NERVE INJURY
     Dosage: 50 MG 1X DAY ORALLY (1 WEEK)  50 MG 2X DAY ORALLY (AFTER 7 DAYS)
     Route: 048
     Dates: start: 20110830, end: 20110909

REACTIONS (4)
  - OTOTOXICITY [None]
  - TINNITUS [None]
  - DRUG INEFFECTIVE [None]
  - CONDITION AGGRAVATED [None]
